FAERS Safety Report 6472968-3 (Version None)
Quarter: 2009Q4

REPORT INFORMATION
  Report Type: 
  Country: None (occurrence: None)
  Receive Date: 20091204
  Receipt Date: 20091124
  Transmission Date: 20100525
  Serious: Yes (Other)
  Sender: FDA-Public Use
  Company Number: US-RANBAXY-2009RR-29439

PATIENT
  Age: 21 Year
  Sex: Female

DRUGS (1)
  1. CEPHALEXIN [Suspect]
     Dosage: 500 MG, QID

REACTIONS (1)
  - LIVER INJURY [None]
